FAERS Safety Report 10628092 (Version 2)
Quarter: 2014Q4

REPORT INFORMATION
  Report Type: Spontaneous
  Country: US (occurrence: US)
  Receive Date: 20141205
  Receipt Date: 20141205
  Transmission Date: 20150529
  Serious: No
  Sender: FDA-Public Use
  Company Number: US-BRISTOL-MYERS SQUIBB COMPANY-21011069

PATIENT
  Age: 67 Year
  Sex: Female

DRUGS (13)
  1. TADALAFIL [Suspect]
     Active Substance: TADALAFIL
     Route: 065
  2. NEXIUM [Concomitant]
     Active Substance: ESOMEPRAZOLE MAGNESIUM
  3. CYTOMEL [Concomitant]
     Active Substance: LIOTHYRONINE SODIUM
  4. LASIX [Concomitant]
     Active Substance: FUROSEMIDE
  5. RESTASIS [Concomitant]
     Active Substance: CYCLOSPORINE
  6. SYNTHROID [Concomitant]
     Active Substance: LEVOTHYROXINE SODIUM
  7. FISH OIL [Concomitant]
     Active Substance: FISH OIL
  8. TRIAMTERENE + HCTZ [Concomitant]
  9. POTASSIUM [Concomitant]
     Active Substance: POTASSIUM
  10. COUMADIN [Suspect]
     Active Substance: WARFARIN SODIUM
     Route: 065
     Dates: end: 20140605
  11. LETAIRIS [Suspect]
     Active Substance: AMBRISENTAN
     Indication: PULMONARY ARTERIAL HYPERTENSION
     Dosage: ONGOING?TABS
     Route: 065
     Dates: start: 20121117
  12. VENTAVIS [Suspect]
     Active Substance: ILOPROST
     Route: 065
  13. MIRALAX [Concomitant]
     Active Substance: POLYETHYLENE GLYCOL 3350

REACTIONS (2)
  - Epistaxis [Unknown]
  - Nasal congestion [Unknown]

NARRATIVE: CASE EVENT DATE: 20140606
